FAERS Safety Report 25913740 (Version 1)
Quarter: 2025Q4

REPORT INFORMATION
  Report Type: Spontaneous
  Country: US (occurrence: US)
  Receive Date: 20251013
  Receipt Date: 20251013
  Transmission Date: 20260118
  Serious: Yes (Hospitalization)
  Sender: MYLAN
  Company Number: US-MYLANLABS-2025M1086599

PATIENT
  Age: 63 Year
  Sex: Female

DRUGS (8)
  1. TACROLIMUS [Suspect]
     Active Substance: TACROLIMUS
     Indication: Immunosuppressant drug therapy
     Dosage: UNK, MAINTENANCE; TARGET TROUGH LEVEL OF 10-12 NG/ML
  2. MYCOPHENOLATE MOFETIL [Suspect]
     Active Substance: MYCOPHENOLATE MOFETIL
     Indication: Immunosuppressant drug therapy
     Dosage: 1000 MILLIGRAM, BID (MAINTENANCE)
  3. MYCOPHENOLATE MOFETIL [Suspect]
     Active Substance: MYCOPHENOLATE MOFETIL
     Dosage: 250 MILLIGRAM, BID (RESTARTED AT LOWER DOSE)
  4. PREDNISONE [Suspect]
     Active Substance: PREDNISONE
     Indication: Immunosuppressant drug therapy
     Dosage: 5 MILLIGRAM, QD (DOSE TAPERED)
  5. PREDNISONE [Suspect]
     Active Substance: PREDNISONE
     Dosage: 10 MILLIGRAM, DOSE INCREASED
  6. PREDNISONE [Suspect]
     Active Substance: PREDNISONE
     Dosage: 5 MILLIGRAM, QD (DOSE TAPERED)
  7. THYMOGLOBULIN [Suspect]
     Active Substance: LAPINE T-LYMPHOCYTE IMMUNE GLOBULIN
     Indication: Immunosuppressant drug therapy
     Dosage: 1.5 MILLIGRAM/KILOGRAM (INDUCTION; 4 DOSES)
  8. LETERMOVIR [Concomitant]
     Active Substance: LETERMOVIR
     Indication: Cytomegalovirus infection
     Dosage: UNK

REACTIONS (3)
  - Post transplant lymphoproliferative disorder [Recovered/Resolved]
  - Anuria [Recovered/Resolved]
  - Diffuse large B-cell lymphoma [Recovered/Resolved]
